FAERS Safety Report 13292950 (Version 4)
Quarter: 2017Q2

REPORT INFORMATION
  Report Type: Spontaneous
  Country: US (occurrence: US)
  Receive Date: 20170303
  Receipt Date: 20170509
  Transmission Date: 20170830
  Serious: Yes (Other)
  Sender: FDA-Public Use
  Company Number: US-ASTRAZENECA-2017SE20618

PATIENT
  Age: 850 Month
  Sex: Female
  Weight: 65.3 kg

DRUGS (18)
  1. ONDANSETRON [Concomitant]
     Active Substance: ONDANSETRON
     Indication: NAUSEA
     Dosage: 1 TAB(S) ORALLY 3 TIMES A DAY X 10 DAYS, AS NEEDED
     Route: 048
  2. CALCIUM-VITAMIN D [Concomitant]
     Dosage: 1200RNG/4001U ORALLY ONCE A DAY
     Route: 048
  3. XGEVA [Concomitant]
     Active Substance: DENOSUMAB
     Route: 048
  4. TRAMADOL. [Concomitant]
     Active Substance: TRAMADOL
     Indication: PAIN
     Dosage: EVERY 6 HOURS X 10 DAYS, AS NEEDED
     Route: 048
  5. GAS-X [Concomitant]
     Active Substance: DIMETHICONE
     Dosage: 1 TAB(S) ORALLY , AS NEEDED
     Route: 048
  6. ARIMIDEX [Suspect]
     Active Substance: ANASTROZOLE
     Indication: BREAST CANCER
     Route: 048
     Dates: start: 200808, end: 201606
  7. FISH OIL [Concomitant]
     Active Substance: FISH OIL
     Route: 048
  8. PROPRANOLOL [Concomitant]
     Active Substance: PROPRANOLOL HYDROCHLORIDE
     Route: 048
  9. LOSARTAN. [Concomitant]
     Active Substance: LOSARTAN
     Dosage: 1 TAB(S) ORALLY ONCE A DAY
     Route: 048
  10. ONE-A-DAY WOMEN [Concomitant]
     Route: 048
  11. FASLODEX [Suspect]
     Active Substance: FULVESTRANT
     Indication: BREAST CANCER METASTATIC
     Route: 030
     Dates: start: 201606
  12. IBRANCE [Suspect]
     Active Substance: PALBOCICLIB
     Indication: BREAST CANCER METASTATIC
     Route: 048
     Dates: start: 201607
  13. ALPRAZOLAM. [Concomitant]
     Active Substance: ALPRAZOLAM
     Indication: ANXIETY
     Dosage: 1 TAB(S) EVERY 8 HOURS X 30 DAYS, AS NEEDED
     Route: 048
  14. NARCO [Concomitant]
     Indication: PAIN
     Dosage: 5 MG-325 MG, 1 TAB(S) EVERY 6 HOURS X 30 DAYS, AS NEEDED
     Route: 048
  15. ADVIL [Concomitant]
     Active Substance: IBUPROFEN
     Dosage: 1 TAB(S) AS NEEDED
     Route: 048
  16. LIDODERM [Concomitant]
     Active Substance: LIDOCAINE
     Dosage: APPLY TOPICALLY TO AFFECTED AREA ONCE A DAY 12 HOURS ON AND 12 HOURS OFF
     Route: 061
  17. BUTALBITAL, ACETAMINOPHEN, AND CAFFEINE [Concomitant]
     Active Substance: ACETAMINOPHEN\BUTALBITAL\CAFFEINE
     Indication: HEADACHE
     Dosage: 50 MG~300 MG-40 MG, 1 CAP(S) EVERY 6 HOURS. AS NEEDED
     Route: 048
  18. TAMOXIFEN [Concomitant]
     Active Substance: TAMOXIFEN
     Dates: start: 1996, end: 2001

REACTIONS (16)
  - Back pain [Not Recovered/Not Resolved]
  - Intervertebral disc degeneration [Unknown]
  - Intervertebral disc space narrowing [Unknown]
  - Alopecia [Unknown]
  - Headache [Recovering/Resolving]
  - Metastases to bone [Not Recovered/Not Resolved]
  - Spinal column stenosis [Unknown]
  - Ovarian enlargement [Unknown]
  - Hypertension [Unknown]
  - Dyspepsia [Not Recovered/Not Resolved]
  - Fatigue [Not Recovered/Not Resolved]
  - Dysgeusia [Unknown]
  - Nausea [Not Recovered/Not Resolved]
  - Diarrhoea [Unknown]
  - Malignant neoplasm progression [Unknown]
  - Anxiety [Not Recovered/Not Resolved]

NARRATIVE: CASE EVENT DATE: 201606
